FAERS Safety Report 5042706-X (Version None)
Quarter: 2006Q2

REPORT INFORMATION
  Report Type: 
  Country: None (occurrence: None)
  Receive Date: 20060601
  Receipt Date: 20060224
  Transmission Date: 20061013
  Serious: No
  Sender: FDA-Public Use
  Company Number: 2006PV009295

PATIENT
  Age: 37 Year
  Sex: Female
  Weight: 93.441 kg

DRUGS (7)
  1. BYETTA [Suspect]
     Indication: INSULIN RESISTANT DIABETES
     Dosage: 5 MCG;BID;SC
     Route: 058
     Dates: start: 20060215, end: 20060222
  2. METFORMIN [Concomitant]
  3. WELLBUTRIN [Concomitant]
  4. FOLIC ACID [Concomitant]
  5. ASCORBIC ACID [Concomitant]
  6. IRON [Concomitant]
  7. ORAL CONTRACEPTIVES NOS [Concomitant]

REACTIONS (1)
  - URTICARIA [None]
